FAERS Safety Report 16157429 (Version 12)
Quarter: 2019Q4

REPORT INFORMATION
  Report Type: Spontaneous
  Country: US (occurrence: US)
  Receive Date: 20190404
  Receipt Date: 20191028
  Transmission Date: 20200122
  Serious: Yes (Death, Life-Threatening, Hospitalization, Other)
  Sender: FDA-Public Use
  Company Number: US-PFIZER INC-2019140709

PATIENT
  Age: 70 Year
  Sex: Male
  Weight: 81.63 kg

DRUGS (4)
  1. VALSARTAN. [Concomitant]
     Active Substance: VALSARTAN
     Indication: HYPERTENSION
     Dosage: UNK
     Dates: start: 2015
  2. CAMPTOSAR [Suspect]
     Active Substance: IRINOTECAN HYDROCHLORIDE
     Indication: RECTAL CANCER METASTATIC
     Dosage: UNK
     Route: 042
     Dates: start: 20171005
  3. IRINOTECAN HCL [Suspect]
     Active Substance: IRINOTECAN HYDROCHLORIDE
     Indication: RECTAL CANCER
     Dosage: UNK
     Dates: start: 20171005
  4. CAPECITABINE. [Concomitant]
     Active Substance: CAPECITABINE
     Indication: RECTAL CANCER
     Dosage: 1000 MG, 2X/DAY
     Dates: start: 20171005

REACTIONS (23)
  - Asthenia [Unknown]
  - Dysarthria [Unknown]
  - Speech disorder [Unknown]
  - Yellow skin [Unknown]
  - Overdose [Unknown]
  - Gait disturbance [Unknown]
  - Pain [Unknown]
  - Chromaturia [Unknown]
  - Dehydration [Unknown]
  - Weight decreased [Unknown]
  - Coordination abnormal [Unknown]
  - Anal incontinence [Unknown]
  - Jaundice [Unknown]
  - Diarrhoea [Unknown]
  - Death [Fatal]
  - Flatulence [Unknown]
  - Haemorrhage [Unknown]
  - Dysstasia [Unknown]
  - Hepatic function abnormal [Unknown]
  - Feeling cold [Unknown]
  - Cerebrovascular accident [Unknown]
  - Neoplasm progression [Unknown]
  - Abdominal pain upper [Unknown]

NARRATIVE: CASE EVENT DATE: 20180106
